FAERS Safety Report 7546985-6 (Version None)
Quarter: 2011Q2

REPORT INFORMATION
  Report Type: 
  Country: None (occurrence: None)
  Receive Date: 20110614
  Receipt Date: 20110607
  Transmission Date: 20111010
  Serious: Yes (Other)
  Sender: FDA-Public Use
  Company Number: PHHY2011GB49374

PATIENT
  Age: 47 Year
  Sex: Male

DRUGS (3)
  1. AMITRIPTYLINE HCL [Suspect]
     Indication: DEPRESSION
     Dosage: UNK UKN, UNK
  2. FLUOXETINE HCL [Suspect]
     Indication: DEPRESSION
     Dosage: UNK UKN, UNK
  3. RISPERIDONE [Suspect]
     Indication: DEPRESSION
     Dosage: UNK UKN, UNK

REACTIONS (4)
  - PITUITARY TUMOUR BENIGN [None]
  - VISUAL PATHWAY DISORDER [None]
  - SECONDARY HYPOGONADISM [None]
  - BLOOD PROLACTIN INCREASED [None]
